FAERS Safety Report 11483197 (Version 1)
Quarter: 2015Q3

REPORT INFORMATION
  Report Type: Spontaneous
  Country: US (occurrence: US)
  Receive Date: 20150903
  Receipt Date: 20150903
  Transmission Date: 20151125
  Serious: No
  Sender: FDA-Public Use
  Company Number: US-ELI_LILLY_AND_COMPANY-US201205010588

PATIENT
  Age: 61 Year
  Sex: Female

DRUGS (1)
  1. CYMBALTA [Suspect]
     Active Substance: DULOXETINE HYDROCHLORIDE
     Indication: MUSCULOSKELETAL PAIN
     Dosage: 60 MG, UNK
     Dates: start: 20120528

REACTIONS (5)
  - Abdominal pain [Recovering/Resolving]
  - Feeling hot [Unknown]
  - Urine output decreased [Recovering/Resolving]
  - Nausea [Recovering/Resolving]
  - Retching [Unknown]

NARRATIVE: CASE EVENT DATE: 20120529
